FAERS Safety Report 4355077-9 (Version None)
Quarter: 2004Q2

REPORT INFORMATION
  Report Type: 
  Country: None (occurrence: None)
  Receive Date: 20040504
  Receipt Date: 20040422
  Transmission Date: 20050107
  Serious: Yes (Life-Threatening, Hospitalization)
  Sender: FDA-Public Use
  Company Number: 04P-055-0258519-00

PATIENT
  Age: 76 Year
  Sex: Female

DRUGS (7)
  1. TRICOR [Suspect]
     Dosage: 200 MG, 1 IN 1 D, ORAL
     Route: 048
     Dates: start: 20020930, end: 20040210
  2. NITROFUR-C [Suspect]
     Dosage: 75 MG, 1 IN 1 D
     Dates: start: 20020930, end: 20040207
  3. MELOXICAM [Suspect]
     Dosage: 7.5 MG, 1 IN 1 D
     Dates: start: 20040129, end: 20040208
  4. CITALOPRAM HYDROBROMIDE [Concomitant]
  5. FUROSEMIDE [Concomitant]
  6. METOPROLOL TARTRATE [Concomitant]
  7. PHYTONADIONE [Concomitant]

REACTIONS (7)
  - ABDOMINAL SYMPTOM [None]
  - ASTHENIA [None]
  - HEPATOCELLULAR DAMAGE [None]
  - HEPATOMEGALY [None]
  - PLATELET COUNT INCREASED [None]
  - PULMONARY EMBOLISM [None]
  - VOMITING [None]
